FAERS Safety Report 5337094-5 (Version None)
Quarter: 2007Q2

REPORT INFORMATION
  Report Type: 
  Country: None (occurrence: None)
  Receive Date: 20070523
  Receipt Date: 20070514
  Transmission Date: 20071010
  Serious: Yes (Other)
  Sender: FDA-Public Use
  Company Number: FRP07000383

PATIENT
  Age: 75 Year
  Sex: Female

DRUGS (4)
  1. ACTONEL [Suspect]
     Indication: OSTEOPOROSIS
     Dosage: 35 MG, 1/WEEK, ORAL
     Route: 048
     Dates: start: 20070401
  2. FENOFIBRATE [Concomitant]
  3. MICARDIS [Concomitant]
  4. GINKOR FORT (TROXERUTIN, HEPTAMINOL HYDROCHLORIDE, GINKGO BILOBA) [Concomitant]

REACTIONS (8)
  - ALANINE AMINOTRANSFERASE INCREASED [None]
  - ASPARTATE AMINOTRANSFERASE INCREASED [None]
  - GAMMA-GLUTAMYLTRANSFERASE INCREASED [None]
  - HYPERBILIRUBINAEMIA [None]
  - NAUSEA [None]
  - OCULAR ICTERUS [None]
  - URINE ABNORMALITY [None]
  - VOMITING [None]
